FAERS Safety Report 14447075 (Version 1)
Quarter: 2018Q1

REPORT INFORMATION
  Report Type: Spontaneous
  Country: US (occurrence: US)
  Receive Date: 20180126
  Receipt Date: 20180126
  Transmission Date: 20180509
  Serious: No
  Sender: FDA-Public Use
  Company Number: US-LEXICON PHARMACEUTICALS, INC-17-1606-01373

PATIENT
  Age: 67 Year
  Sex: Female

DRUGS (23)
  1. TELOTRISTAT ETHYL [Suspect]
     Active Substance: TELOTRISTAT ETHYL
     Indication: CARCINOID TUMOUR
     Route: 048
     Dates: start: 20171018
  2. ALPRAZOLAM. [Concomitant]
     Active Substance: ALPRAZOLAM
  3. BRIMONIDINE [Concomitant]
     Active Substance: BRIMONIDINE TARTRATE
  4. BETAXOLOL. [Concomitant]
     Active Substance: BETAXOLOL
  5. PROMETHAZINE [Concomitant]
     Active Substance: PROMETHAZINE\PROMETHAZINE HYDROCHLORIDE
  6. BACTRIM [Concomitant]
     Active Substance: SULFAMETHOXAZOLE\TRIMETHOPRIM
  7. TEMAZEPAM. [Concomitant]
     Active Substance: TEMAZEPAM
  8. ALBUTEROL. [Concomitant]
     Active Substance: ALBUTEROL
  9. LOMOTIL [Concomitant]
     Active Substance: ATROPINE SULFATE\DIPHENOXYLATE HYDROCHLORIDE
  10. TACROLIMUS. [Concomitant]
     Active Substance: TACROLIMUS
  11. OPIUM. [Concomitant]
     Active Substance: OPIUM
  12. OXYCODONE [Concomitant]
     Active Substance: OXYCODONE
  13. POTASSIUM CHLORIDE. [Concomitant]
     Active Substance: POTASSIUM CHLORIDE
  14. OCTREOTIDE. [Concomitant]
     Active Substance: OCTREOTIDE
  15. VENTOLIN [Concomitant]
     Active Substance: ALBUTEROL SULFATE
  16. DULOXETINE. [Concomitant]
     Active Substance: DULOXETINE
  17. ASPIRIN. [Concomitant]
     Active Substance: ASPIRIN
  18. FLUTICASONE PROPIONATE. [Concomitant]
     Active Substance: FLUTICASONE PROPIONATE
  19. MAGNESIUM [Concomitant]
     Active Substance: MAGNESIUM
  20. AMLODIPINE [Concomitant]
     Active Substance: AMLODIPINE BESYLATE
  21. PANCREASE MT [Concomitant]
     Active Substance: PANCRELIPASE
  22. LEVOTHYROXINE. [Concomitant]
     Active Substance: LEVOTHYROXINE
  23. LUMIGAN [Concomitant]
     Active Substance: BIMATOPROST

REACTIONS (1)
  - Nausea [Recovering/Resolving]

NARRATIVE: CASE EVENT DATE: 20171025
